FAERS Safety Report 11239669 (Version 1)
Quarter: 2015Q3

REPORT INFORMATION
  Report Type: Spontaneous
  Country: CA (occurrence: CA)
  Receive Date: 20150706
  Receipt Date: 20150706
  Transmission Date: 20151125
  Serious: Yes (Hospitalization)
  Sender: FDA-Public Use
  Company Number: CA-JNJFOC-20150623551

PATIENT
  Age: 43 Year
  Sex: Female
  Weight: 79 kg

DRUGS (8)
  1. COMBIVIR [Concomitant]
     Active Substance: LAMIVUDINE\ZIDOVUDINE
     Route: 065
  2. SALBUTAMOL [Concomitant]
     Active Substance: ALBUTEROL
     Route: 065
  3. VENLAFAXINE XR [Concomitant]
     Active Substance: VENLAFAXINE HYDROCHLORIDE
     Dosage: FORMULATION: CAPSULE, EXTENDED RELEASE.
     Route: 065
  4. INTELENCE [Suspect]
     Active Substance: ETRAVIRINE
     Indication: HIV INFECTION
     Route: 048
  5. LORAZEPAM. [Concomitant]
     Active Substance: LORAZEPAM
     Route: 065
  6. DICLOFENAC [Concomitant]
     Active Substance: DICLOFENAC
     Route: 065
  7. SPIRIVA [Concomitant]
     Active Substance: TIOTROPIUM BROMIDE MONOHYDRATE
     Route: 065
  8. TENOFOVIR [Concomitant]
     Active Substance: TENOFOVIR
     Route: 065

REACTIONS (6)
  - Anaphylactoid reaction [Recovered/Resolved]
  - Lip swelling [Recovered/Resolved]
  - Rash generalised [Recovered/Resolved]
  - Condition aggravated [Recovered/Resolved]
  - Stevens-Johnson syndrome [Recovered/Resolved]
  - Asthma [Recovered/Resolved]
